FAERS Safety Report 20894321 (Version 2)
Quarter: 2022Q2

REPORT INFORMATION
  Report Type: Spontaneous
  Country: US (occurrence: US)
  Receive Date: 20220531
  Receipt Date: 20220614
  Transmission Date: 20220721
  Serious: Yes (Other)
  Sender: FDA-Public Use
  Company Number: US-BAYER-2022A073138

PATIENT
  Age: 55 Year
  Sex: Female

DRUGS (1)
  1. KOGENATE FS [Suspect]
     Active Substance: ANTIHEMOPHILIC FACTOR, HUMAN RECOMBINANT
     Dosage: 2000 DF, EVERY 12 HOURS THROUGH, THEN DAILY
     Route: 042
     Dates: start: 20220215, end: 20220525

REACTIONS (2)
  - Hip surgery [None]
  - Product dose omission issue [None]

NARRATIVE: CASE EVENT DATE: 20220511
